FAERS Safety Report 24270215 (Version 1)
Quarter: 2024Q3

REPORT INFORMATION
  Report Type: Report from Study
  Country: US (occurrence: US)
  Receive Date: 20240830
  Receipt Date: 20240830
  Transmission Date: 20241016
  Serious: Yes (Other)
  Sender: AEGERION
  Company Number: US-AMRYT PHARMACEUTICALS DAC-AEGR007366

PATIENT
  Sex: Female

DRUGS (1)
  1. FILSUVEZ [Suspect]
     Active Substance: BIRCH TRITERPENES
     Indication: Product used for unknown indication
     Dosage: UNK

REACTIONS (2)
  - Staphylococcal infection [Unknown]
  - Intentional product misuse [Unknown]
